FAERS Safety Report 11860487 (Version 1)
Quarter: 2015Q4

REPORT INFORMATION
  Report Type: Spontaneous
  Country: JP (occurrence: JP)
  Receive Date: 20151222
  Receipt Date: 20151222
  Transmission Date: 20160305
  Serious: Yes (Other)
  Sender: FDA-Public Use
  Company Number: JP-ELI_LILLY_AND_COMPANY-JP201512006652

PATIENT
  Age: 59 Year
  Sex: Female
  Weight: 60 kg

DRUGS (17)
  1. SODIUM VALPROATE [Suspect]
     Active Substance: VALPROATE SODIUM
     Indication: BIPOLAR I DISORDER
     Route: 048
  2. LITHIUM CARBONATE. [Suspect]
     Active Substance: LITHIUM CARBONATE
     Indication: BIPOLAR I DISORDER
     Route: 048
  3. DROPERIDOL. [Concomitant]
     Active Substance: DROPERIDOL
     Route: 065
  4. ZYPREXA [Suspect]
     Active Substance: OLANZAPINE
     Indication: BIPOLAR I DISORDER
     Dosage: 5 MG, UNK
  5. CLOMIPRAMINE [Suspect]
     Active Substance: CLOMIPRAMINE
     Indication: BIPOLAR I DISORDER
     Dosage: 30 MG, UNK
     Route: 048
  6. REMIFENTANIL [Suspect]
     Active Substance: REMIFENTANIL
     Indication: ANAESTHESIA
     Route: 065
  7. FENTANYL. [Concomitant]
     Active Substance: FENTANYL
  8. BROMAZEPAM [Suspect]
     Active Substance: BROMAZEPAM
     Indication: BIPOLAR I DISORDER
     Route: 048
  9. SEVOFLURANE. [Suspect]
     Active Substance: SEVOFLURANE
     Indication: ANAESTHESIA
     Route: 065
  10. ROCURONIUM [Concomitant]
     Active Substance: ROCURONIUM BROMIDE
  11. ROPIVACAINE [Suspect]
     Active Substance: ROPIVACAINE
     Indication: ANAESTHESIA
     Route: 065
  12. ETHYL LOFLAZEPATE [Suspect]
     Active Substance: ETHYL LOFLAZEPATE
     Indication: BIPOLAR I DISORDER
     Route: 048
  13. PROPOFOL. [Suspect]
     Active Substance: PROPOFOL
     Indication: ANAESTHESIA
     Route: 065
  14. SUGAMMADEX [Concomitant]
     Active Substance: SUGAMMADEX
     Indication: ANAESTHESIA
     Route: 065
  15. LEVOMEPROMAZINE [Suspect]
     Active Substance: LEVOMEPROMAZINE
     Indication: BIPOLAR I DISORDER
     Route: 048
  16. FLUNITRAZEPAM [Suspect]
     Active Substance: FLUNITRAZEPAM
     Indication: BIPOLAR I DISORDER
     Route: 048
  17. DEXAMETHASONE. [Concomitant]
     Active Substance: DEXAMETHASONE

REACTIONS (1)
  - Hypotension [Recovered/Resolved]
